FAERS Safety Report 13388695 (Version 2)
Quarter: 2017Q4

REPORT INFORMATION
  Report Type: Report from Study
  Country: None (occurrence: US)
  Receive Date: 20170331
  Receipt Date: 20171026
  Transmission Date: 20180320
  Serious: Yes (Hospitalization, Other)
  Sender: FDA-Public Use
  Company Number: US-ABBVIE-17K-163-1924752-00

PATIENT
  Age: 49 Year
  Sex: Female

DRUGS (1)
  1. HUMIRA [Suspect]
     Active Substance: ADALIMUMAB
     Indication: CROHN^S DISEASE
     Route: 058

REACTIONS (9)
  - Intestinal obstruction [Recovered/Resolved]
  - Migraine [Unknown]
  - Abdominal pain [Unknown]
  - Intestinal perforation [Recovered/Resolved]
  - Constipation [Not Recovered/Not Resolved]
  - Dehydration [Recovered/Resolved]
  - Hyperhidrosis [Unknown]
  - Nausea [Unknown]
  - Mucous stools [Unknown]

NARRATIVE: CASE EVENT DATE: 201602
